FAERS Safety Report 22272602 (Version 1)
Quarter: 2023Q2

REPORT INFORMATION
  Report Type: Other
  Country: IL (occurrence: IL)
  Receive Date: 20230502
  Receipt Date: 20230502
  Transmission Date: 20230722
  Serious: No
  Sender: FDA-Public Use
  Company Number: IL-MACROGENICS-2022000196

PATIENT
  Age: 47 Year
  Sex: Female

DRUGS (3)
  1. MARGENZA [Suspect]
     Active Substance: MARGETUXIMAB-CMKB
     Indication: HER2 positive breast cancer
     Dosage: 975 MILLIGRAM, EVERY 21 DAYS
     Route: 042
     Dates: start: 202203, end: 202211
  2. MARGENZA [Suspect]
     Active Substance: MARGETUXIMAB-CMKB
     Indication: Breast cancer metastatic
  3. ERIBULIN [Concomitant]
     Active Substance: ERIBULIN
     Indication: Product used for unknown indication
     Dosage: 2.2, EVERY 21 DAYS
     Route: 065
     Dates: start: 20220509, end: 20221121

REACTIONS (3)
  - Drug ineffective [Unknown]
  - Alopecia [Recovered/Resolved]
  - Constipation [Recovered/Resolved]

NARRATIVE: CASE EVENT DATE: 20220301
